FAERS Safety Report 7003704-X (Version None)
Quarter: 2010Q3

REPORT INFORMATION
  Report Type: 
  Country: None (occurrence: None)
  Receive Date: 20100920
  Receipt Date: 20090413
  Transmission Date: 20110219
  Serious: No
  Sender: FDA-Public Use
  Company Number: US-WYE-H08947909

PATIENT
  Sex: Female
  Weight: 59.02 kg

DRUGS (4)
  1. PROTONIX [Suspect]
     Indication: GASTRITIS
     Dosage: ^40 MG OFF AND ON^
     Route: 048
     Dates: start: 20080101, end: 20080101
  2. PROTONIX [Suspect]
     Route: 048
     Dates: start: 20090101
  3. PROTONIX [Suspect]
     Route: 048
     Dates: start: 20090101, end: 20090301
  4. XANAX [Concomitant]

REACTIONS (7)
  - ABDOMINAL DISTENSION [None]
  - ABDOMINAL PAIN UPPER [None]
  - BLOOD GLUCOSE DECREASED [None]
  - DRUG HYPERSENSITIVITY [None]
  - HERPES ZOSTER [None]
  - PAIN [None]
  - WEIGHT DECREASED [None]
